FAERS Safety Report 13235041 (Version 1)
Quarter: 2017Q1

REPORT INFORMATION
  Report Type: Spontaneous
  Country: GB (occurrence: GB)
  Receive Date: 20170215
  Receipt Date: 20170215
  Transmission Date: 20170428
  Serious: Yes (Hospitalization, Other)
  Sender: FDA-Public Use
  Company Number: GB-PFIZER INC-1733027

PATIENT
  Age: 3 Year
  Sex: Male
  Weight: 16 kg

DRUGS (36)
  1. VINCRISTINE SULFATE. [Suspect]
     Active Substance: VINCRISTINE SULFATE
     Dosage: 1 MG, 1X/DAY
     Route: 040
     Dates: start: 20130614
  2. DOMPERIDONE [Concomitant]
     Active Substance: DOMPERIDONE
     Dosage: 15.5 MG, UNK
     Dates: start: 20130622
  3. LEVOMEPROMAZINE [Concomitant]
     Active Substance: LEVOMEPROMAZINE
     Dosage: 1.6 MG, UNK
     Route: 065
     Dates: start: 20130504
  4. METOCLOPRAMIDE. [Concomitant]
     Active Substance: METOCLOPRAMIDE
     Dosage: 2.5 MG, UNK
     Route: 065
     Dates: start: 20130504, end: 20130510
  5. PANTOPRAZOLE [Concomitant]
     Active Substance: PANTOPRAZOLE SODIUM
     Dosage: 15 MG, UNK
     Route: 042
     Dates: start: 20130616, end: 20130616
  6. PARACETAMOL [Concomitant]
     Active Substance: ACETAMINOPHEN
     Dosage: 960 MG, UNK
     Dates: start: 20130506
  7. RANITIDIN [Concomitant]
     Active Substance: RANITIDINE HYDROCHLORIDE
     Dosage: 120 MG, UNK
     Dates: start: 20130627
  8. SENNA /00142201/ [Concomitant]
     Active Substance: SENNA LEAF
     Dosage: 10 ML, UNK
     Dates: start: 20130620, end: 20130626
  9. BUSCOPAN [Concomitant]
     Active Substance: BUTYLSCOPOLAMINE BROMIDE
     Dosage: UNK
  10. TAZOCIN [Concomitant]
     Active Substance: PIPERACILLIN SODIUM\TAZOBACTAM SODIUM
     Dosage: 9 G, UNK
     Dates: start: 20130608
  11. ONDANSETRON [Concomitant]
     Active Substance: ONDANSETRON
     Dosage: 7.5 MG, UNK
     Route: 065
     Dates: start: 20130504, end: 20130521
  12. DOXORUBICIN HCL [Suspect]
     Active Substance: DOXORUBICIN HYDROCHLORIDE
     Dosage: 20 MG, 1X/DAY
     Route: 042
     Dates: start: 20130524
  13. NOZINAN /00038603/ [Concomitant]
     Active Substance: LEVOMEPROMAZINE
     Dosage: 6 MG, UNK
     Dates: start: 20130615, end: 20130616
  14. DEXAMETHASONE. [Concomitant]
     Active Substance: DEXAMETHASONE
     Dosage: 2.8 MG, UNK
     Dates: start: 20130614, end: 20130616
  15. OMEPRAZOLE. [Concomitant]
     Active Substance: OMEPRAZOLE
     Dosage: 10 MG, UNK
     Dates: start: 20130615, end: 20130626
  16. DOXORUBICIN HCL [Suspect]
     Active Substance: DOXORUBICIN HYDROCHLORIDE
     Indication: NEOPLASM MALIGNANT
     Dosage: 2 MG, 1X/DAY
     Route: 040
     Dates: start: 20130504
  17. LYOVAC COSMEGEN [Suspect]
     Active Substance: DACTINOMYCIN
     Dosage: 0.75 MG, ONCE
     Route: 040
     Dates: start: 20130524
  18. BEVACIZUMAB [Suspect]
     Active Substance: BEVACIZUMAB
     Indication: NEOPLASM MALIGNANT
     Dosage: 120 MG, ONCE
     Route: 042
     Dates: start: 20130524
  19. IFOSFAMIDE. [Suspect]
     Active Substance: IFOSFAMIDE
     Dosage: 1950 MG, DAILY
     Route: 042
     Dates: start: 20130524
  20. VINCRISTINE SULFATE. [Suspect]
     Active Substance: VINCRISTINE SULFATE
     Indication: NEOPLASM MALIGNANT
     Dosage: 2 MG, 1X/DAY
     Route: 040
     Dates: start: 20130504
  21. LYOVAC COSMEGEN [Suspect]
     Active Substance: DACTINOMYCIN
     Indication: NEOPLASM MALIGNANT
     Dosage: 1 MG, 1X/DAY
     Route: 040
     Dates: start: 20130504
  22. IFOSFAMIDE. [Suspect]
     Active Substance: IFOSFAMIDE
     Indication: NEOPLASM MALIGNANT
     Dosage: 2 MG, 1X/DAY
     Route: 041
     Dates: start: 20130504
  23. ONDANSETRON [Concomitant]
     Active Substance: ONDANSETRON
     Dosage: 7.2 MG, UNK
     Route: 065
     Dates: start: 20130614
  24. MESNA. [Suspect]
     Active Substance: MESNA
     Indication: NEOPLASM MALIGNANT
     Dosage: 2450 MG, DAILY
     Route: 042
     Dates: start: 20130524
  25. MOVICOL [Concomitant]
     Active Substance: POLYETHYLENE GLYCOL 3350\POTASSIUM CHLORIDE\SODIUM BICARBONATE\SODIUM CHLORIDE
     Dosage: UNK
     Route: 065
  26. ORAMORPH [Concomitant]
     Active Substance: MORPHINE SULFATE
     Dosage: 14 MG, UNK
  27. RANITIDIN [Concomitant]
     Active Substance: RANITIDINE HYDROCHLORIDE
     Dosage: 60 MG, UNK
     Dates: start: 20130514, end: 20130521
  28. RANITIDIN [Concomitant]
     Active Substance: RANITIDINE HYDROCHLORIDE
     Dosage: UNK
     Dates: start: 20130609, end: 20130609
  29. ORAMORPH [Concomitant]
     Active Substance: MORPHINE SULFATE
     Dosage: 8 MG, UNK
     Dates: start: 20130614
  30. TAZOCIN [Concomitant]
     Active Substance: PIPERACILLIN SODIUM\TAZOBACTAM SODIUM
     Dosage: 4.2 G, UNK
     Route: 065
     Dates: start: 20130513
  31. DEXAMETHASONE. [Concomitant]
     Active Substance: DEXAMETHASONE
     Dosage: 2.8 MG, UNK
     Route: 065
     Dates: start: 20130504, end: 20130505
  32. PARACETAMOL [Concomitant]
     Active Substance: ACETAMINOPHEN
     Dosage: 240 MG, UNK
     Dates: start: 20130430
  33. MESNA. [Suspect]
     Active Substance: MESNA
     Dosage: 2340 MG, DAILY
     Route: 042
     Dates: start: 20130614
  34. DOMPERIDONE [Concomitant]
     Active Substance: DOMPERIDONE
     Dosage: 12 MG, UNK
     Dates: start: 20130609, end: 20130612
  35. LACTULOSE. [Concomitant]
     Active Substance: LACTULOSE
     Dosage: 20 MG, UNK
     Dates: start: 20130620, end: 20130628
  36. PANTOPRAZOLE [Concomitant]
     Active Substance: PANTOPRAZOLE SODIUM
     Indication: VOMITING
     Dosage: 16 MG, UNK
     Route: 065
     Dates: start: 20130505

REACTIONS (7)
  - Vomiting [Recovered/Resolved]
  - Pleural effusion [Recovered/Resolved]
  - Febrile neutropenia [Recovered/Resolved]
  - Hypophagia [Unknown]
  - Hypophagia [Recovered/Resolved]
  - Diarrhoea [Not Recovered/Not Resolved]
  - Weight decreased [Unknown]

NARRATIVE: CASE EVENT DATE: 20130506
